FAERS Safety Report 4288824-5 (Version None)
Quarter: 2004Q1

REPORT INFORMATION
  Report Type: 
  Country: None (occurrence: None)
  Receive Date: 20040209
  Receipt Date: 20040130
  Transmission Date: 20041129
  Serious: Yes (Death)
  Sender: FDA-Public Use
  Company Number: PHBS2004JP01641

PATIENT
  Age: 9 Year
  Sex: Female

DRUGS (4)
  1. CYCLOSPORINE [Suspect]
     Route: 065
  2. METHOTREXATE [Suspect]
  3. CYCLOPHOSPHAMIDE [Suspect]
  4. IRRADIATION [Suspect]

REACTIONS (5)
  - ADENOVIRUS INFECTION [None]
  - HAEMATURIA [None]
  - HAEMORRHAGE INTRACRANIAL [None]
  - PYREXIA [None]
  - RENAL FAILURE [None]
